FAERS Safety Report 9879609 (Version 1)
Quarter: 2014Q1

REPORT INFORMATION
  Report Type: Spontaneous
  Country: DK (occurrence: FR)
  Receive Date: 20140206
  Receipt Date: 20140206
  Transmission Date: 20141002
  Serious: Yes (Death)
  Sender: FDA-Public Use
  Company Number: FR-FRI-1000054021

PATIENT
  Age: 87 Year
  Sex: Female

DRUGS (9)
  1. TRANSIPEG [Concomitant]
  2. TRIATEC [Concomitant]
  3. MODOPAR [Concomitant]
     Dates: start: 201311
  4. ESCITALOPRAM [Suspect]
     Route: 048
  5. PLAVIX [Suspect]
     Dosage: 1 DF
     Route: 048
     Dates: start: 2007, end: 20140108
  6. DIAMICRON [Concomitant]
  7. GLUCOR [Concomitant]
  8. IKOREL [Concomitant]
  9. PRAVASTATIN [Concomitant]

REACTIONS (1)
  - Subdural haematoma [Fatal]
